FAERS Safety Report 5362699-5 (Version None)
Quarter: 2007Q2

REPORT INFORMATION
  Report Type: 
  Country: None (occurrence: None)
  Receive Date: 20070612
  Receipt Date: 20070530
  Transmission Date: 20071010
  Serious: Yes (Hospitalization)
  Sender: FDA-Public Use
  Company Number: RENA-12207

PATIENT
  Sex: Male

DRUGS (2)
  1. RENAGEL. MFR: GENZYME [Suspect]
     Indication: DIALYSIS
  2. RENAGEL. MFR: GENZYME [Suspect]
     Indication: HYPERPHOSPHATAEMIA

REACTIONS (2)
  - HAEMATURIA [None]
  - INTERNATIONAL NORMALISED RATIO INCREASED [None]
